FAERS Safety Report 9606771 (Version 2)
Quarter: 2013Q4

REPORT INFORMATION
  Report Type: Spontaneous
  Country: US (occurrence: US)
  Receive Date: 20131008
  Receipt Date: 20131008
  Transmission Date: 20140711
  Serious: No
  Sender: FDA-Public Use
  Company Number: US-AMGEN-USASP2013060539

PATIENT
  Age: 73 Year
  Sex: Female
  Weight: 66.67 kg

DRUGS (4)
  1. PROLIA [Suspect]
     Indication: OSTEOPOROSIS POSTMENOPAUSAL
     Dosage: 60 MG, Q6MO
     Route: 058
     Dates: start: 20111129
  2. PROLIA [Suspect]
     Dosage: UNK
  3. PROLIA [Suspect]
  4. PROLIA [Suspect]

REACTIONS (1)
  - Tooth disorder [Unknown]
